FAERS Safety Report 4688623-6 (Version None)
Quarter: 2005Q2

REPORT INFORMATION
  Report Type: 
  Country: None (occurrence: None)
  Receive Date: 20050613
  Receipt Date: 20050601
  Transmission Date: 20051028
  Serious: Yes (Hospitalization)
  Sender: FDA-Public Use
  Company Number: US-BRISTOL-MYERS SQUIBB COMPANY-12989844

PATIENT
  Age: 34 Year
  Sex: Female
  Weight: 80 kg

DRUGS (5)
  1. ARIPIPRAZOLE [Suspect]
     Indication: SCHIZOPHRENIA
  2. METFORMIN HCL [Concomitant]
  3. DIAZEPAM [Concomitant]
     Dosage: 2.5 MG TWICE A DAY AND 5 MG AT BEDTIME.
  4. OLANZAPINE [Concomitant]
     Dosage: AT BEDTIME
  5. ROSIGLITAZONE [Concomitant]

REACTIONS (2)
  - DIABETIC KETOACIDOSIS [None]
  - HYPOVOLAEMIA [None]
